FAERS Safety Report 13665016 (Version 1)
Quarter: 2017Q2

REPORT INFORMATION
  Report Type: Spontaneous
  Country: KR (occurrence: KR)
  Receive Date: 20170619
  Receipt Date: 20170619
  Transmission Date: 20170830
  Serious: Yes (Other)
  Sender: FDA-Public Use
  Company Number: KR-009507513-1701KOR006319

PATIENT
  Age: 60 Year
  Sex: Male
  Weight: 57.7 kg

DRUGS (16)
  1. TAMIPOOL [Concomitant]
     Active Substance: VITAMINS
     Indication: VITAMIN SUPPLEMENTATION
     Dosage: 1 VIAL, QD
     Route: 042
     Dates: start: 20160805, end: 20160810
  2. EMEND (FOSAPREPITANT DIMEGLUMINE) [Suspect]
     Active Substance: FOSAPREPITANT DIMEGLUMINE
     Dosage: 150 MG, ONCE
     Route: 042
     Dates: start: 20160827, end: 20160827
  3. DEXAMETHASONE SODIUM PHOSPHATE. [Concomitant]
     Active Substance: DEXAMETHASONE SODIUM PHOSPHATE
     Dosage: 40 MG, QD
     Route: 042
     Dates: start: 20160827, end: 20160830
  4. CISPLATIN. [Concomitant]
     Active Substance: CISPLATIN
     Indication: GASTRIC CANCER
     Dosage: 80 MG, ONCE, CYCLE 1 (STRENGHT: 50MG/100ML)
     Route: 042
     Dates: start: 20160805, end: 20160805
  5. CISPLATIN. [Concomitant]
     Active Substance: CISPLATIN
     Dosage: 80 MG, ONCE, CYCLE 2 (STRENGHT: 50MG/100ML)
     Route: 042
     Dates: start: 20160827, end: 20160827
  6. ALOXI [Concomitant]
     Active Substance: PALONOSETRON HYDROCHLORIDE
     Dosage: 0.25 MG, ONCE
     Route: 042
     Dates: start: 20160827, end: 20160827
  7. LASIX [Concomitant]
     Active Substance: FUROSEMIDE
     Dosage: 20 MG, ONCE (STRENGHT: 20MG/2ML)
     Route: 042
     Dates: start: 20160827, end: 20160827
  8. DEXAMETHASONE SODIUM PHOSPHATE. [Concomitant]
     Active Substance: DEXAMETHASONE SODIUM PHOSPHATE
     Indication: PROPHYLAXIS OF NAUSEA AND VOMITING
     Dosage: 40 MG, QD
     Route: 042
     Dates: start: 20160805, end: 20160808
  9. ALOXI [Concomitant]
     Active Substance: PALONOSETRON HYDROCHLORIDE
     Indication: PROPHYLAXIS OF NAUSEA AND VOMITING
     Dosage: 0.25 MG, ONCE
     Route: 042
     Dates: start: 20160805, end: 20160805
  10. DUPHALAC [Concomitant]
     Active Substance: LACTULOSE
     Indication: CONSTIPATION PROPHYLAXIS
     Dosage: 15 ML, TID
     Route: 048
     Dates: start: 20160806, end: 20160827
  11. LASIX [Concomitant]
     Active Substance: FUROSEMIDE
     Indication: PROPHYLAXIS
     Dosage: 20 MG, QD (STRENGHT: 20MG/2ML)
     Route: 042
     Dates: start: 20160805, end: 20160807
  12. XELODA [Concomitant]
     Active Substance: CAPECITABINE
     Dosage: 1300 MG, BID, CYCLE 2 (2600 MG DAILY)
     Route: 048
     Dates: start: 20160827, end: 20160909
  13. EGAFUSIN [Concomitant]
     Indication: PROPHYLAXIS
     Dosage: 500 ML, QD
     Route: 042
     Dates: start: 20160805, end: 20160810
  14. XELODA [Concomitant]
     Active Substance: CAPECITABINE
     Indication: GASTRIC CANCER
     Dosage: 1300 MG, BID, CYCLE 1 (2600 MG DAILY)
     Route: 048
     Dates: start: 20160805, end: 20160818
  15. TRIDOL (TRAMADOL HYDROCHLORIDE) [Concomitant]
     Indication: PAIN PROPHYLAXIS
     Dosage: 1 CAPSULE, TID
     Route: 048
     Dates: start: 20160805, end: 20160808
  16. EMEND (FOSAPREPITANT DIMEGLUMINE) [Suspect]
     Active Substance: FOSAPREPITANT DIMEGLUMINE
     Indication: PROPHYLAXIS OF NAUSEA AND VOMITING
     Dosage: 150 MG, ONCE
     Route: 042
     Dates: start: 20160805, end: 20160805

REACTIONS (3)
  - Constipation [Recovered/Resolved]
  - Hypoaesthesia [Not Recovered/Not Resolved]
  - Polyneuropathy [Recovering/Resolving]

NARRATIVE: CASE EVENT DATE: 20160807
